FAERS Safety Report 12093260 (Version 3)
Quarter: 2016Q1

REPORT INFORMATION
  Report Type: Spontaneous
  Country: JP (occurrence: JP)
  Receive Date: 20160219
  Receipt Date: 20160301
  Transmission Date: 20160526
  Serious: Yes (Other)
  Sender: FDA-Public Use
  Company Number: PHJP2016JP003284

PATIENT
  Age: 83 Year
  Sex: Male

DRUGS (2)
  1. ZOLEDRONATE [Suspect]
     Active Substance: ZOLEDRONIC ACID
     Indication: METASTASES TO BONE
     Dosage: UNK UNK, QMO
     Route: 065
  2. DENOSUMAB [Suspect]
     Active Substance: DENOSUMAB
     Indication: METASTASES TO BONE
     Dosage: 8 DF, QMO
     Route: 058

REACTIONS (5)
  - Gingival swelling [Unknown]
  - Gingivitis [Unknown]
  - Osteonecrosis of jaw [Recovering/Resolving]
  - Gingival erythema [Unknown]
  - Exposed bone in jaw [Unknown]
